FAERS Safety Report 13658656 (Version 1)
Quarter: 2017Q2

REPORT INFORMATION
  Report Type: Spontaneous
  Country: FI (occurrence: FI)
  Receive Date: 20170616
  Receipt Date: 20170616
  Transmission Date: 20170830
  Serious: Yes (Hospitalization)
  Sender: FDA-Public Use
  Company Number: FI-ROCHE-1944736

PATIENT
  Age: 81 Year
  Sex: Female

DRUGS (4)
  1. ESBRIET [Suspect]
     Active Substance: PIRFENIDONE
     Dosage: 2 CAPSULES 3 TIMES A DAY
     Route: 048
     Dates: start: 201705
  2. ESBRIET [Suspect]
     Active Substance: PIRFENIDONE
     Dosage: 3 CAPSULE 3 TIMES A DAY
     Route: 048
     Dates: start: 201705, end: 201705
  3. ESBRIET [Suspect]
     Active Substance: PIRFENIDONE
     Dosage: 1 CAPSULE 3 TIMES A DAY
     Route: 048
     Dates: start: 201705, end: 201705
  4. ESBRIET [Suspect]
     Active Substance: PIRFENIDONE
     Indication: IDIOPATHIC PULMONARY FIBROSIS
     Route: 048
     Dates: start: 201701, end: 201702

REACTIONS (6)
  - Secretion discharge [Unknown]
  - Nausea [Unknown]
  - Pneumonia [Recovered/Resolved]
  - Cough [Unknown]
  - Dizziness [Unknown]
  - Nasal congestion [Unknown]

NARRATIVE: CASE EVENT DATE: 201702
